FAERS Safety Report 4758079-3 (Version None)
Quarter: 2005Q3

REPORT INFORMATION
  Report Type: 
  Country: None (occurrence: None)
  Receive Date: 20050829
  Receipt Date: 20050819
  Transmission Date: 20060218
  Serious: Yes (Other)
  Sender: FDA-Public Use
  Company Number: 2005059215

PATIENT
  Age: 15 Year
  Sex: Male

DRUGS (3)
  1. GENOTROPIN [Suspect]
     Indication: HYPOPITUITARISM
     Dosage: SEE IMAGE, SUBCUTANEOUS
     Route: 058
     Dates: start: 20020603, end: 20040709
  2. GENOTROPIN [Suspect]
     Indication: HYPOPITUITARISM
     Dosage: SEE IMAGE, SUBCUTANEOUS
     Route: 058
     Dates: start: 20040710, end: 20050423
  3. GENOTROPIN [Suspect]
     Indication: HYPOPITUITARISM
     Dosage: SEE IMAGE, SUBCUTANEOUS
     Route: 058
     Dates: start: 20050723

REACTIONS (1)
  - COLITIS ULCERATIVE [None]
